FAERS Safety Report 6163728-1 (Version None)
Quarter: 2009Q2

REPORT INFORMATION
  Report Type: 
  Country: None (occurrence: None)
  Receive Date: 20090420
  Receipt Date: 20090420
  Transmission Date: 20091009
  Serious: Yes (Life-Threatening, Hospitalization, Other)
  Sender: FDA-Public Use
  Company Number: None

PATIENT
  Age: 69 Year
  Sex: Female
  Weight: 65.7716 kg

DRUGS (1)
  1. RISPERIDONE [Suspect]

REACTIONS (4)
  - AGITATION [None]
  - ANXIETY [None]
  - BEDRIDDEN [None]
  - CEREBROVASCULAR ACCIDENT [None]
